FAERS Safety Report 4284263-1 (Version None)
Quarter: 2004Q1

REPORT INFORMATION
  Report Type: 
  Country: None (occurrence: None)
  Receive Date: 20040203
  Receipt Date: 20030411
  Transmission Date: 20041129
  Serious: Yes (Other)
  Sender: FDA-Public Use
  Company Number: WAES 0304USA01363

PATIENT
  Age: 47 Year
  Sex: Female
  Weight: 76 kg

DRUGS (22)
  1. SYNTHROID [Concomitant]
     Route: 048
  2. CLARITIN-D [Concomitant]
     Route: 048
  3. NASONEX [Concomitant]
  4. PRILOSEC [Concomitant]
     Indication: GASTROOESOPHAGEAL REFLUX DISEASE
  5. PRILOSEC [Concomitant]
  6. OXYBUTYNIN CHLORIDE [Concomitant]
  7. PAXIL [Concomitant]
     Route: 048
     Dates: start: 20000101, end: 20000701
  8. VIOXX [Suspect]
     Indication: OSTEOARTHRITIS
     Route: 048
     Dates: start: 20000407, end: 20011201
  9. VIOXX [Suspect]
     Route: 048
     Dates: start: 20020101, end: 20020201
  10. VIOXX [Suspect]
     Indication: FIBROMYALGIA
     Route: 048
     Dates: start: 20000407, end: 20011201
  11. VIOXX [Suspect]
     Route: 048
     Dates: start: 20020101, end: 20020201
  12. ULTRAM [Concomitant]
     Indication: PAIN
     Dates: start: 20010101, end: 20020101
  13. EFFEXOR XR [Concomitant]
     Dates: start: 20000701
  14. SONATA [Concomitant]
     Indication: SLEEP DISORDER
     Dates: start: 20000101, end: 20000727
  15. AMBIEN [Concomitant]
     Indication: SLEEP DISORDER
     Dates: start: 20000101, end: 20000727
  16. PANLOR SS [Concomitant]
     Indication: PAIN
  17. ZOVIRAX [Concomitant]
     Route: 048
  18. TESSALON [Concomitant]
  19. DOCUSATE SODIUM [Concomitant]
     Route: 048
  20. GLUCOSAMINE [Concomitant]
  21. HUMIBID [Concomitant]
  22. LANSOPRAZOLE [Concomitant]
     Route: 048

REACTIONS (47)
  - AGE INDETERMINATE MYOCARDIAL INFARCTION [None]
  - ANEURYSM [None]
  - ANXIETY [None]
  - ASTHENIA [None]
  - BLOOD CHOLESTEROL INCREASED [None]
  - CARPAL TUNNEL SYNDROME [None]
  - CHRONIC FATIGUE SYNDROME [None]
  - CONTUSION [None]
  - CRYING [None]
  - DEPRESSION [None]
  - DIZZINESS [None]
  - DRY MOUTH [None]
  - DYSPEPSIA [None]
  - EAR PRURITUS [None]
  - EMOTIONAL DISTRESS [None]
  - FIBROMYALGIA [None]
  - FOOD CRAVING [None]
  - FOOD INTOLERANCE [None]
  - GAIT DISTURBANCE [None]
  - GASTROOESOPHAGEAL REFLUX DISEASE [None]
  - INCREASED TENDENCY TO BRUISE [None]
  - INJURY [None]
  - INSOMNIA [None]
  - IRRITABLE BOWEL SYNDROME [None]
  - KERATOCONJUNCTIVITIS SICCA [None]
  - MITRAL VALVE INCOMPETENCE [None]
  - MUSCLE ATROPHY [None]
  - MUSCULOSKELETAL STIFFNESS [None]
  - MYALGIA [None]
  - MYOCARDIAL INFARCTION [None]
  - NASAL DISORDER [None]
  - NAUSEA [None]
  - NIGHT CRAMPS [None]
  - OSTEOARTHRITIS [None]
  - PAIN [None]
  - PARAESTHESIA [None]
  - PRURITUS [None]
  - RESTLESS LEGS SYNDROME [None]
  - SINUSITIS [None]
  - SLEEP APNOEA SYNDROME [None]
  - STRESS SYMPTOMS [None]
  - THIRST [None]
  - TRICUSPID VALVE INCOMPETENCE [None]
  - VARICOSE VEIN [None]
  - VENTRICULAR DYSFUNCTION [None]
  - VISUAL DISTURBANCE [None]
  - WEIGHT INCREASED [None]
